FAERS Safety Report 13519643 (Version 1)
Quarter: 2017Q2

REPORT INFORMATION
  Report Type: Report from Study
  Country: US (occurrence: US)
  Receive Date: 20170505
  Receipt Date: 20170505
  Transmission Date: 20170830
  Serious: Yes (Death)
  Sender: FDA-Public Use
  Company Number: US-B.I. PHARMACEUTICALS,INC./RIDGEFIELD-2017-BI-025373

PATIENT

DRUGS (2)
  1. HEPARIN [Concomitant]
     Active Substance: HEPARIN SODIUM
     Indication: PRODUCT USED FOR UNKNOWN INDICATION
     Dosage: 10 UU/KG/H AND UP TITRATED TO MAINTAIN APTT BETWEEN 60 AND 80 S
     Route: 065
  2. PERSANTIN [Suspect]
     Active Substance: DIPYRIDAMOLE
     Indication: ANTICOAGULANT THERAPY
     Dosage: 4MG/KG/DAY DIVIDED INTO 4 DOSES AT 48 HOUR POST IMPLANTATION
     Route: 065

REACTIONS (1)
  - Cerebral infarction [Fatal]
